FAERS Safety Report 10207960 (Version 1)
Quarter: 2014Q2

REPORT INFORMATION
  Report Type: Spontaneous
  Country: DE (occurrence: DE)
  Receive Date: 20140530
  Receipt Date: 20140530
  Transmission Date: 20141212
  Serious: Yes (Life-Threatening, Hospitalization)
  Sender: FDA-Public Use
  Company Number: DE-WATSON-2014-11144

PATIENT
  Age: 54 Year
  Sex: Male
  Weight: 63 kg

DRUGS (9)
  1. RAMIPRIL (UNKNOWN) [Suspect]
     Indication: HYPERTENSION
     Dosage: 5 MG, TOTAL
     Route: 048
     Dates: start: 20140414
  2. ROCEPHIN [Suspect]
     Indication: PANCREAS INFECTION
     Dosage: 2 G, TOTAL
     Route: 017
     Dates: start: 20140414
  3. NORMOFUNDIN [Concomitant]
     Indication: PRODUCT USED FOR UNKNOWN INDICATION
     Dosage: 500 ML, UNKNOWN
     Route: 017
  4. PANTOPRAZOL [Concomitant]
     Indication: PRODUCT USED FOR UNKNOWN INDICATION
     Dosage: 40 MG, UNKNOWN
     Route: 017
  5. KREON 25000 [Concomitant]
     Indication: PANCREATIC INSUFFICIENCY
     Dosage: UNK UNK, UNKNOWN
     Route: 048
  6. BELOC-ZOK COMP [Concomitant]
     Indication: HYPERTENSION
     Dosage: 47.5 MG, UNKNOWN
     Route: 048
  7. SAROTEN [Concomitant]
     Indication: DEPRESSION
     Dosage: 50 MG, UNKNOWN
     Route: 048
  8. VITAMIN B COMPLEX [Concomitant]
     Indication: PRODUCT USED FOR UNKNOWN INDICATION
     Dosage: 1X1 UNK, UNKNOWN
     Route: 048
  9. MAGNESIUM VERLA                    /00648601/ [Concomitant]
     Indication: PRODUCT USED FOR UNKNOWN INDICATION
     Dosage: 2-2-2, UNK, UNK
     Route: 048

REACTIONS (4)
  - Angioedema [Recovering/Resolving]
  - Bradycardia [Recovering/Resolving]
  - Circulatory collapse [Recovering/Resolving]
  - Resuscitation [Recovering/Resolving]
